FAERS Safety Report 20418893 (Version 2)
Quarter: 2022Q1

REPORT INFORMATION
  Report Type: Spontaneous
  Country: US (occurrence: US)
  Receive Date: 20220202
  Receipt Date: 20220207
  Transmission Date: 20220423
  Serious: Yes (Hospitalization, Other)
  Sender: FDA-Public Use
  Company Number: US-BIOGEN-2022BI01091032

PATIENT
  Sex: Female

DRUGS (1)
  1. TECFIDERA [Suspect]
     Active Substance: DIMETHYL FUMARATE
     Indication: Multiple sclerosis
     Route: 065
     Dates: start: 20210527

REACTIONS (7)
  - Mental disorder [Unknown]
  - Cerebrovascular accident [Unknown]
  - Balance disorder [Unknown]
  - Depression [Unknown]
  - Weight decreased [Unknown]
  - Incoherent [Unknown]
  - Hyperaesthesia [Unknown]
